FAERS Safety Report 24659894 (Version 1)
Quarter: 2024Q4

REPORT INFORMATION
  Report Type: Spontaneous
  Country: CA (occurrence: CA)
  Receive Date: 20241125
  Receipt Date: 20241125
  Transmission Date: 20250114
  Serious: Yes (Hospitalization, Other)
  Sender: DAIICHI
  Company Number: CA-ASTRAZENECA-202411CAN006714CA

PATIENT
  Sex: Female
  Weight: 66 kg

DRUGS (2)
  1. TRASTUZUMAB DERUXTECAN [Suspect]
     Active Substance: TRASTUZUMAB DERUXTECAN
     Indication: Breast cancer
     Dosage: 419 MILLIGRAM, EVERY 3RD DAY
     Route: 042
  2. TRASTUZUMAB DERUXTECAN [Suspect]
     Active Substance: TRASTUZUMAB DERUXTECAN
     Dosage: 219 MILLIGRAM, EVERY 3RD DAY
     Route: 042

REACTIONS (8)
  - Cytopenia [Unknown]
  - Diarrhoea [Unknown]
  - Erythema [Unknown]
  - Fatigue [Unknown]
  - Lymphoedema [Unknown]
  - Nausea [Unknown]
  - Pain in extremity [Unknown]
  - Swelling [Unknown]
